FAERS Safety Report 6480420-4 (Version None)
Quarter: 2009Q4

REPORT INFORMATION
  Report Type: 
  Country: None (occurrence: None)
  Receive Date: 20091202
  Receipt Date: 20091119
  Transmission Date: 20100525
  Serious: Yes (Other)
  Sender: FDA-Public Use
  Company Number: MC200900348

PATIENT
  Age: 28 Year
  Sex: Male

DRUGS (23)
  1. ANGIOMAX [Suspect]
     Indication: ANTICOAGULANT THERAPY
     Dosage: 0.75 MG/KG, BOLUS, INTRAVENOUS, 1 MG/KG, HR, INTRAVENOUS
     Route: 042
     Dates: start: 20090903, end: 20090903
  2. ANGIOMAX [Suspect]
     Indication: ANTICOAGULANT THERAPY
     Dosage: 0.75 MG/KG, BOLUS, INTRAVENOUS, 1 MG/KG, HR, INTRAVENOUS
     Route: 042
     Dates: start: 20090903, end: 20090904
  3. COUMADIN [Concomitant]
  4. PHYTONADIONE [Concomitant]
  5. ALBUTEROL (SALBUTAMOL SULFATE) [Concomitant]
  6. ALBUMIN (HUMAN) [Concomitant]
  7. COMBIVENT [Concomitant]
  8. ASPIRIN [Concomitant]
  9. CALMOSEPTINE (CALAMINE) [Concomitant]
  10. DOCUSATE (DOCUSATE) [Concomitant]
  11. NEXIUM [Concomitant]
  12. ARTIFICIAL TEARS (HYPROMELLOSE) [Concomitant]
  13. FUROSEMIDE (FUROSEMIDE SODIUM) [Concomitant]
  14. HYIDROCORTISONE (HYDROCORTISONE ACETATE) [Concomitant]
  15. ATROVENT [Concomitant]
  16. LEVOFLOXACIN [Concomitant]
  17. VERSED [Concomitant]
  18. MORPHINE [Concomitant]
  19. ATIVAN [Concomitant]
  20. ZOFRAN [Concomitant]
  21. LYIRICA (PREGABALIN) [Concomitant]
  22. TPN [Concomitant]
  23. ALDACTONE [Concomitant]

REACTIONS (4)
  - ACTIVATED PARTIAL THROMBOPLASTIN TIME PROLONGED [None]
  - INTERNATIONAL NORMALISED RATIO INCREASED [None]
  - OFF LABEL USE [None]
  - PLEURAL EFFUSION [None]
